FAERS Safety Report 9779150 (Version 2)
Quarter: 2014Q1

REPORT INFORMATION
  Report Type: Report from Study
  Country: IT (occurrence: IT)
  Receive Date: 20131223
  Receipt Date: 20140123
  Transmission Date: 20141002
  Serious: No
  Sender: FDA-Public Use
  Company Number: IT-ACTELION-A-CH2013-92741

PATIENT
  Sex: Male
  Weight: 2.52 kg

DRUGS (1)
  1. TRACLEER [Suspect]
     Indication: MATERNAL EXPOSURE DURING PREGNANCY
     Dosage: 65.2 MG, BID
     Route: 064
     Dates: end: 20130415

REACTIONS (1)
  - Normal newborn [Unknown]
